FAERS Safety Report 5049042-6 (Version None)
Quarter: 2006Q3

REPORT INFORMATION
  Report Type: 
  Country: None (occurrence: None)
  Receive Date: 20060712
  Receipt Date: 20060201
  Transmission Date: 20061208
  Serious: No
  Sender: FDA-Public Use
  Company Number: US-GLAXOSMITHKLINE-A0591934A

PATIENT
  Age: 55 Year
  Sex: Female

DRUGS (4)
  1. IMITREX [Suspect]
     Indication: MIGRAINE
     Dosage: 100MG AS REQUIRED
     Route: 048
     Dates: start: 19980101
  2. KLONOPIN [Concomitant]
  3. ZOLOFT [Concomitant]
  4. MIDRIN [Concomitant]

REACTIONS (5)
  - CHEST PAIN [None]
  - ERYTHEMA [None]
  - FEELING ABNORMAL [None]
  - FEELING HOT [None]
  - SENSATION OF HEAVINESS [None]
